FAERS Safety Report 9781564 (Version 1)
Quarter: 2013Q4

REPORT INFORMATION
  Report Type: Spontaneous
  Country: US (occurrence: None)
  Receive Date: 20131223
  Receipt Date: 20131223
  Transmission Date: 20140711
  Serious: Yes (Hospitalization)
  Sender: FDA-Public Use
  Company Number: None

PATIENT
  Age: 90 Year
  Sex: Male
  Weight: 85.9 kg

DRUGS (2)
  1. DONEPEZIL [Suspect]
     Indication: DEMENTIA
     Route: 048
     Dates: start: 20130910, end: 20130926
  2. DOXYCYCLINE [Suspect]
     Indication: SKIN INFECTION
     Route: 048
     Dates: start: 20130917, end: 20130926

REACTIONS (1)
  - Rash [None]
